FAERS Safety Report 9305385 (Version 1)
Quarter: 2013Q2

REPORT INFORMATION
  Report Type: Spontaneous
  Country: CA (occurrence: None)
  Receive Date: 20130520
  Receipt Date: 20130520
  Transmission Date: 20140414
  Serious: Yes (Hospitalization)
  Sender: FDA-Public Use
  Company Number: CA-MACLEODS PHARMA-000093

PATIENT
  Age: 68 Year
  Sex: Male

DRUGS (2)
  1. AMLODIPINE (AMLODIPINE) [Suspect]
  2. METFORMIN (METFORMIN) [Suspect]

REACTIONS (3)
  - Metabolic acidosis [None]
  - Overdose [None]
  - Haemodynamic instability [None]
